FAERS Safety Report 9104548 (Version 1)
Quarter: 2013Q1

REPORT INFORMATION
  Report Type: Report from Study
  Country: CA (occurrence: CA)
  Receive Date: 20130219
  Receipt Date: 20130219
  Transmission Date: 20140127
  Serious: Yes (Hospitalization)
  Sender: FDA-Public Use
  Company Number: CA-ROCHE-1191855

PATIENT
  Sex: Female
  Weight: 59 kg

DRUGS (9)
  1. XELODA [Suspect]
     Indication: BREAST CANCER
     Route: 048
     Dates: start: 2012
  2. EFFEXOR [Concomitant]
     Route: 065
  3. CORTISONE [Concomitant]
     Route: 065
  4. QUETIAPINE FUMARATE [Concomitant]
     Route: 065
  5. ATIVAN [Concomitant]
     Route: 065
  6. MIRTAZAPINE [Concomitant]
     Route: 065
  7. SENOKOT [Concomitant]
     Route: 065
  8. COLACE [Concomitant]
     Route: 065
  9. DILAUDID [Concomitant]
     Route: 065

REACTIONS (3)
  - Pulmonary oedema [Recovered/Resolved]
  - Asthenia [Recovered/Resolved]
  - Abscess oral [Recovered/Resolved]
